FAERS Safety Report 9894261 (Version 1)
Quarter: 2014Q1

REPORT INFORMATION
  Report Type: Spontaneous
  Country: US (occurrence: US)
  Receive Date: 20140213
  Receipt Date: 20140213
  Transmission Date: 20141002
  Serious: Yes (Other)
  Sender: FDA-Public Use
  Company Number: US-GLAXOSMITHKLINE-A1060711A

PATIENT
  Age: 64 Year
  Sex: Male

DRUGS (1)
  1. ARIXTRA [Suspect]
     Indication: PRODUCT USED FOR UNKNOWN INDICATION
     Dosage: 7.5MG UNKNOWN
     Route: 042

REACTIONS (2)
  - Brain neoplasm malignant [Unknown]
  - Deep vein thrombosis [Unknown]
